FAERS Safety Report 6576774-0 (Version None)
Quarter: 2010Q1

REPORT INFORMATION
  Report Type: 
  Country: None (occurrence: None)
  Receive Date: 20100210
  Receipt Date: 20100201
  Transmission Date: 20100710
  Serious: Yes (Other)
  Sender: FDA-Public Use
  Company Number: JP-B.I. PHARMACEUTICALS,INC./RIDGEFIELD-2010-BP-01137NB

PATIENT
  Sex: Female
  Weight: 52 kg

DRUGS (1)
  1. MICARDIS [Suspect]
     Indication: HYPERTENSION
     Dosage: 40 MG
     Route: 048
     Dates: start: 20060801, end: 20090126

REACTIONS (3)
  - BREAST CANCER [None]
  - GENERAL PHYSICAL HEALTH DETERIORATION [None]
  - PERITONITIS [None]
